FAERS Safety Report 9615881 (Version 1)
Quarter: 2013Q4

REPORT INFORMATION
  Report Type: Spontaneous
  Country: US (occurrence: None)
  Receive Date: 20131010
  Receipt Date: 20131010
  Transmission Date: 20140711
  Serious: Yes (Other)
  Sender: FDA-Public Use
  Company Number: None

PATIENT
  Age: 64 Year
  Sex: Female
  Weight: 61.24 kg

DRUGS (2)
  1. OSPHENA [Suspect]
     Indication: VULVOVAGINAL PAIN
     Route: 048
     Dates: start: 20131001, end: 20131009
  2. OSPHENA [Suspect]
     Indication: ATROPHIC VULVOVAGINITIS
     Route: 048
     Dates: start: 20131001, end: 20131009

REACTIONS (1)
  - Depression [None]
